FAERS Safety Report 24370157 (Version 1)
Quarter: 2024Q3

REPORT INFORMATION
  Report Type: Report from Study
  Country: US (occurrence: US)
  Receive Date: 20240927
  Receipt Date: 20240927
  Transmission Date: 20241017
  Serious: No
  Sender: ROCHE
  Company Number: US-ROCHE-3552031

PATIENT
  Age: 91 Year
  Sex: Female
  Weight: 47.17 kg

DRUGS (6)
  1. LUCENTIS [Suspect]
     Active Substance: RANIBIZUMAB
     Indication: Neovascular age-related macular degeneration
     Dosage: 3 INJECTIONS OF MAY AND JUNE 2022, LAST TWO INJECTIONS WERE SAMPLES? LAST DOSE 16/APR/2024
     Route: 031
     Dates: start: 20220407
  2. LUCENTIS [Suspect]
     Active Substance: RANIBIZUMAB
     Indication: Choroidal neovascularisation
  3. LUCENTIS [Suspect]
     Active Substance: RANIBIZUMAB
     Indication: Endophthalmitis
  4. AVASTIN [Suspect]
     Active Substance: BEVACIZUMAB
     Indication: Neovascular age-related macular degeneration
     Route: 031
     Dates: start: 20220719
  5. AVASTIN [Suspect]
     Active Substance: BEVACIZUMAB
     Indication: Choroidal neovascularisation
  6. AVASTIN [Suspect]
     Active Substance: BEVACIZUMAB
     Indication: Endophthalmitis

REACTIONS (4)
  - Photopsia [Recovered/Resolved]
  - Eye pain [Recovered/Resolved]
  - Metamorphopsia [Recovered/Resolved]
  - Off label use [Unknown]

NARRATIVE: CASE EVENT DATE: 20220719
